FAERS Safety Report 5725975-X (Version None)
Quarter: 2008Q2

REPORT INFORMATION
  Report Type: 
  Country: None (occurrence: None)
  Receive Date: 20080502
  Receipt Date: 20080429
  Transmission Date: 20081010
  Serious: Yes (Hospitalization)
  Sender: FDA-Public Use
  Company Number: US-BRISTOL-MYERS SQUIBB COMPANY-14169650

PATIENT
  Age: 15 Year
  Sex: Male
  Weight: 106 kg

DRUGS (3)
  1. ABILIFY [Suspect]
     Indication: ASPERGER'S DISORDER
     Dosage: STARTED IN 06,20MG/D + STOPPED.RESTARTED SEP07,10MG/D.DISCONTINUED IN NOV07.RESTARTED APR08,10 MG/D
     Dates: start: 20060101
  2. ADDERALL 10 [Concomitant]
     Dosage: ADDERALL TIME -RELEASE
  3. TENEX [Concomitant]

REACTIONS (10)
  - ABNORMAL BEHAVIOUR [None]
  - ANGER [None]
  - ARACHNOID CYST [None]
  - CHEST PAIN [None]
  - DRUG LEVEL INCREASED [None]
  - EFFUSION [None]
  - FATIGUE [None]
  - HEART RATE INCREASED [None]
  - MYOPERICARDITIS [None]
  - TIC [None]
